FAERS Safety Report 16741853 (Version 1)
Quarter: 2019Q3

REPORT INFORMATION
  Report Type: Other
  Country: CA (occurrence: CA)
  Receive Date: 20190826
  Receipt Date: 20190826
  Transmission Date: 20191005
  Serious: Yes (Death, Other)
  Sender: FDA-Public Use
  Company Number: CA-MAYNE PHARMA-2019MYN000665

PATIENT

DRUGS (16)
  1. CEFOTAXIME [Suspect]
     Active Substance: CEFOTAXIME SODIUM
     Indication: ANTIBIOTIC THERAPY
     Dosage: 50 MG/KG, BID
     Route: 065
  2. VANCOMYCIN HCL [Suspect]
     Active Substance: VANCOMYCIN HYDROCHLORIDE
     Indication: ANTIBIOTIC THERAPY
     Dosage: 15 MG/KG, QD
     Route: 065
  3. SULFAMETH/TRIMETH [Suspect]
     Active Substance: SULFAMETHOXAZOLE\TRIMETHOPRIM
     Indication: STENOTROPHOMONAS INFECTION
     Dosage: 1 MG/KG, BID
     Route: 065
  4. SULFAMETH/TRIMETH [Suspect]
     Active Substance: SULFAMETHOXAZOLE\TRIMETHOPRIM
     Dosage: 2 MG/KG, QID
     Route: 048
  5. ERYTHROMYCIN. [Suspect]
     Active Substance: ERYTHROMYCIN
     Indication: PRODUCT USED FOR UNKNOWN INDICATION
     Dosage: UNK
     Route: 064
  6. CEFOTAXIME [Suspect]
     Active Substance: CEFOTAXIME SODIUM
     Dosage: 50 MG/KG, QID
     Route: 065
  7. AMPICILLIN [Suspect]
     Active Substance: AMPICILLIN
     Dosage: 50 MG/KG, BID
     Route: 065
  8. GENTAMICIN SULFATE. [Suspect]
     Active Substance: GENTAMICIN SULFATE
     Indication: ANTIBIOTIC THERAPY
     Dosage: 5 MG/KG, 1 EVERY 48 HOURS
     Route: 042
  9. BETAMETHASONE. [Suspect]
     Active Substance: BETAMETHASONE
     Indication: PRODUCT USED FOR UNKNOWN INDICATION
     Dosage: UNK
     Route: 064
  10. SULFAMETH/TRIMETH [Suspect]
     Active Substance: SULFAMETHOXAZOLE\TRIMETHOPRIM
     Dosage: 2.5 MG/KG, QID
     Route: 048
  11. MEROPENEM. [Suspect]
     Active Substance: MEROPENEM
     Indication: RESPIRATORY TRACT INFECTION
     Dosage: 20 MG/KG, BID
     Route: 065
  12. LEVOFLOXACIN. [Suspect]
     Active Substance: LEVOFLOXACIN
     Dosage: 10 MG/KG, UNK
     Route: 048
  13. SULFAMETH/TRIMETH [Suspect]
     Active Substance: SULFAMETHOXAZOLE\TRIMETHOPRIM
     Dosage: 5 MG/KG, QID
     Route: 048
  14. LEVOFLOXACIN. [Suspect]
     Active Substance: LEVOFLOXACIN
     Indication: STENOTROPHOMONAS INFECTION
     Dosage: 1 MG/KG, UNK
     Route: 048
  15. AMPICILLIN [Suspect]
     Active Substance: AMPICILLIN
     Indication: ANTIBIOTIC THERAPY
     Dosage: UNK
     Route: 064
  16. SULFAMETH/TRIMETH [Suspect]
     Active Substance: SULFAMETHOXAZOLE\TRIMETHOPRIM
     Dosage: 3 MG/KG, QID
     Route: 048

REACTIONS (12)
  - Stenotrophomonas infection [Fatal]
  - Lethargy [Fatal]
  - Premature baby [Fatal]
  - Umbilical erythema [Fatal]
  - Sepsis [Fatal]
  - Pneumonia bacterial [Fatal]
  - Respiratory disorder [Fatal]
  - Pneumonia [Fatal]
  - Hypotonia [Fatal]
  - Foetal exposure during pregnancy [Recovered/Resolved]
  - Death neonatal [Fatal]
  - Renal failure [Fatal]
